FAERS Safety Report 5986007-1 (Version None)
Quarter: 2008Q4

REPORT INFORMATION
  Report Type: 
  Country: None (occurrence: None)
  Receive Date: 20081205
  Receipt Date: 20081205
  Transmission Date: 20090506
  Serious: Yes (Other)
  Sender: FDA-Public Use
  Company Number: None

PATIENT
  Age: 53 Year
  Sex: Female
  Weight: 51.7101 kg

DRUGS (3)
  1. CYMBALTA [Suspect]
     Indication: DEPRESSION
     Dosage: 1 X DAY PO
     Route: 048
     Dates: start: 20061116, end: 20061121
  2. CYMBALTA [Suspect]
     Indication: GENERALISED ANXIETY DISORDER
     Dosage: 1 X DAY PO
     Route: 048
     Dates: start: 20061116, end: 20061121
  3. CYMBALTA [Suspect]
     Indication: PAIN
     Dosage: 1 X DAY PO
     Route: 048
     Dates: start: 20061116, end: 20061121

REACTIONS (9)
  - BLOOD PRESSURE INCREASED [None]
  - DYSPAREUNIA [None]
  - FEELING ABNORMAL [None]
  - INSOMNIA [None]
  - INTERVERTEBRAL DISC PROTRUSION [None]
  - MUSCLE RIGIDITY [None]
  - MUSCLE TIGHTNESS [None]
  - SUICIDAL IDEATION [None]
  - VOMITING [None]
